FAERS Safety Report 16066225 (Version 2)
Quarter: 2019Q2

REPORT INFORMATION
  Report Type: Spontaneous
  Country: FR (occurrence: FR)
  Receive Date: 20190313
  Receipt Date: 20190402
  Transmission Date: 20190711
  Serious: Yes (Life-Threatening)
  Sender: FDA-Public Use
  Company Number: FR-TAKEDA-2019TEU002322

PATIENT
  Age: 5 Decade
  Sex: Female

DRUGS (22)
  1. COLCHICINE. [Suspect]
     Active Substance: COLCHICINE
     Indication: SYSTEMIC SCLERODERMA
  2. DIGOXIN. [Suspect]
     Active Substance: DIGOXIN
     Indication: ATRIAL FIBRILLATION
     Dosage: UNK
     Route: 065
  3. DIGOXIN. [Suspect]
     Active Substance: DIGOXIN
     Indication: MYOCARDIAL FIBROSIS
  4. PREDNISONE. [Suspect]
     Active Substance: PREDNISONE
     Indication: SYSTEMIC SCLERODERMA
  5. DIGOXIN. [Suspect]
     Active Substance: DIGOXIN
     Indication: PERICARDITIS
  6. METHOTREXATE. [Suspect]
     Active Substance: METHOTREXATE
     Indication: SYSTEMIC SCLERODERMA
     Dosage: 15 MILLIGRAM, 1/WEEK
     Route: 065
  7. COLCHICINE. [Suspect]
     Active Substance: COLCHICINE
     Indication: PERICARDIAL EFFUSION
     Dosage: 1 MILLIGRAM, QD
     Route: 065
     Dates: start: 201408
  8. DIGOXIN. [Suspect]
     Active Substance: DIGOXIN
     Indication: CONGESTIVE CARDIOMYOPATHY
  9. PREDNISONE. [Suspect]
     Active Substance: PREDNISONE
     Indication: ARRHYTHMIA
  10. DIGOXIN. [Suspect]
     Active Substance: DIGOXIN
     Indication: SYSTOLIC DYSFUNCTION
  11. DIGOXIN. [Suspect]
     Active Substance: DIGOXIN
     Indication: SYSTEMIC SCLERODERMA
  12. PREDNISONE. [Suspect]
     Active Substance: PREDNISONE
     Indication: ATRIAL FIBRILLATION
     Dosage: 1 MILLIGRAM/KILOGRAM
     Route: 065
  13. PREDNISONE. [Suspect]
     Active Substance: PREDNISONE
     Indication: CONGESTIVE CARDIOMYOPATHY
  14. PREDNISONE. [Suspect]
     Active Substance: PREDNISONE
     Indication: SYSTOLIC DYSFUNCTION
  15. PREDNISONE. [Suspect]
     Active Substance: PREDNISONE
     Indication: PERICARDIAL EFFUSION
  16. DIGOXIN. [Suspect]
     Active Substance: DIGOXIN
     Indication: CARDIAC TAMPONADE
  17. DIGOXIN. [Suspect]
     Active Substance: DIGOXIN
     Indication: ARRHYTHMIA
  18. DIGOXIN. [Suspect]
     Active Substance: DIGOXIN
     Indication: PERICARDIAL EFFUSION
  19. PREDNISONE. [Suspect]
     Active Substance: PREDNISONE
     Indication: MYOCARDIAL FIBROSIS
     Dosage: 5 MILLIGRAM, QD
     Route: 065
  20. PREDNISONE. [Suspect]
     Active Substance: PREDNISONE
     Indication: PERICARDITIS
  21. RITUXIMAB. [Suspect]
     Active Substance: RITUXIMAB
     Indication: SYSTEMIC SCLERODERMA
     Dosage: UNK
     Route: 065
     Dates: start: 201502
  22. PREDNISONE. [Suspect]
     Active Substance: PREDNISONE
     Indication: CARDIAC TAMPONADE
     Dosage: 0.5 MILLIGRAM/KILOGRAM, QD
     Route: 065
     Dates: start: 201408

REACTIONS (2)
  - No adverse event [Unknown]
  - Drug ineffective [Unknown]
